FAERS Safety Report 18637631 (Version 4)
Quarter: 2021Q1

REPORT INFORMATION
  Report Type: Spontaneous
  Country: DE (occurrence: DE)
  Receive Date: 20201219
  Receipt Date: 20210206
  Transmission Date: 20210419
  Serious: Yes (Other)
  Sender: FDA-Public Use
  Company Number: DE-AUROBINDO-AUR-APL-2020-061447

PATIENT
  Age: 22 Year
  Sex: Female
  Weight: 60 kg

DRUGS (2)
  1. EULITOP 0.10 MG/0.02 MG FILM?COATED TABLET [Suspect]
     Active Substance: ETHINYL ESTRADIOL\LEVONORGESTREL
     Indication: CONTRACEPTION
     Dosage: 1 DOSAGE FORM, DAILY
     Route: 048
     Dates: start: 20191202, end: 20191209
  2. SERTRALIN 1 A PHARMA [Concomitant]
     Active Substance: SERTRALINE HYDROCHLORIDE
     Indication: DEPRESSION
     Dosage: 1 DOSAGE FORM, DAILY
     Route: 048
     Dates: start: 201912

REACTIONS (4)
  - Depression [Recovering/Resolving]
  - Chest pain [Recovering/Resolving]
  - Decreased appetite [Recovering/Resolving]
  - Depressed level of consciousness [Recovering/Resolving]

NARRATIVE: CASE EVENT DATE: 202012
